FAERS Safety Report 4718522-2 (Version None)
Quarter: 2005Q3

REPORT INFORMATION
  Report Type: 
  Country: None (occurrence: None)
  Receive Date: 20050720
  Receipt Date: 20050706
  Transmission Date: 20060218
  Serious: Yes (Hospitalization)
  Sender: FDA-Public Use
  Company Number: PHEH2005US07476

PATIENT
  Age: 44 Year
  Sex: Male

DRUGS (3)
  1. TRILEPTAL [Suspect]
     Indication: COMPLEX PARTIAL SEIZURES
     Dosage: 300 MG, BID
     Route: 048
     Dates: start: 20041101
  2. SPIRONOLACTONE [Concomitant]
     Indication: HYPERTENSION
  3. LISINOPRIL [Concomitant]
     Indication: HYPERTENSION

REACTIONS (8)
  - BACK PAIN [None]
  - BLOOD CALCIUM INCREASED [None]
  - HEADACHE [None]
  - HEARING IMPAIRED [None]
  - MOOD SWINGS [None]
  - PNEUMONIA PNEUMOCOCCAL [None]
  - VISION BLURRED [None]
  - VISUAL DISTURBANCE [None]
